FAERS Safety Report 20637601 (Version 1)
Quarter: 2022Q1

REPORT INFORMATION
  Report Type: Spontaneous
  Country: US (occurrence: US)
  Receive Date: 20220325
  Receipt Date: 20220325
  Transmission Date: 20220423
  Serious: Yes (Other)
  Sender: FDA-Public Use
  Company Number: US-JAZZ-2022-US-009061

PATIENT
  Sex: Female

DRUGS (1)
  1. SUNOSI [Suspect]
     Active Substance: SOLRIAMFETOL
     Indication: Product used for unknown indication

REACTIONS (5)
  - Nephrolithiasis [Unknown]
  - Hypertension [Unknown]
  - Feeling abnormal [Unknown]
  - Endometriosis [Unknown]
  - Cystitis interstitial [Unknown]
